FAERS Safety Report 14996239 (Version 1)
Quarter: 2018Q2

REPORT INFORMATION
  Report Type: Spontaneous
  Country: US (occurrence: US)
  Receive Date: 20180518
  Receipt Date: 20180518
  Transmission Date: 20180711
  Serious: Yes (Disabling, Other)
  Sender: FDA-Public Use
  Company Number: None

PATIENT
  Sex: Female

DRUGS (9)
  1. OSTEPAYOLA [Concomitant]
  2. PROLIA [Suspect]
     Active Substance: DENOSUMAB
     Indication: OSTEOPOROSIS
     Dosage: QUANTITY:1 DF DOSAGE FORM;OTHER FREQUENCY:1 INJECTION EVERY  6 MONTHS?
     Dates: start: 20171223, end: 20171223
  3. BENAZEPRIL [Concomitant]
     Active Substance: BENAZEPRIL HYDROCHLORIDE
  4. VIT - D [Concomitant]
  5. BOTIN [Concomitant]
  6. TYNOL [Concomitant]
  7. MULTI [Concomitant]
  8. LASIX [Concomitant]
     Active Substance: FUROSEMIDE
  9. MOTROPROL [Concomitant]

REACTIONS (4)
  - Myalgia [None]
  - Fractured sacrum [None]
  - Muscle spasms [None]
  - Spinal fracture [None]

NARRATIVE: CASE EVENT DATE: 20171223
